FAERS Safety Report 13354361 (Version 8)
Quarter: 2022Q1

REPORT INFORMATION
  Report Type: Report from Study
  Country: CA (occurrence: CA)
  Receive Date: 20170321
  Receipt Date: 20220301
  Transmission Date: 20220423
  Serious: Yes (Hospitalization, Other)
  Sender: FDA-Public Use
  Company Number: PHHY2014CA058354

PATIENT
  Age: 84 Year
  Sex: Female

DRUGS (7)
  1. SANDOSTATIN LAR DEPOT [Suspect]
     Active Substance: OCTREOTIDE ACETATE
     Indication: Acromegaly
     Dosage: 20 MG, QMO (EVERY 4 WEEKS)
     Route: 030
     Dates: start: 20010731
  2. SANDOSTATIN LAR DEPOT [Suspect]
     Active Substance: OCTREOTIDE ACETATE
     Dosage: 20 MG, Q4W
     Route: 030
     Dates: start: 20131120
  3. SANDOSTATIN LAR DEPOT [Suspect]
     Active Substance: OCTREOTIDE ACETATE
  4. METOPROLOL [Suspect]
     Active Substance: METOPROLOL
     Indication: Product used for unknown indication
     Dosage: 50 MG, BID (STRENGTH: 50 MG)
     Route: 065
     Dates: start: 2017, end: 201708
  5. METOPROLOL [Suspect]
     Active Substance: METOPROLOL
     Dosage: 25 MG, BID (STRENGTH: 25 MG)
     Route: 065
     Dates: start: 201708, end: 2017
  6. ELIQUIS [Concomitant]
     Active Substance: APIXABAN
     Indication: Product used for unknown indication
     Dosage: UNK UNK, BID
     Route: 065
     Dates: start: 2017
  7. LANREOTIDE ACETATE [Concomitant]
     Active Substance: LANREOTIDE ACETATE
     Indication: Product used for unknown indication
     Dosage: UNK
     Route: 065

REACTIONS (21)
  - Spinal fracture [Unknown]
  - Arthralgia [Recovered/Resolved]
  - Joint dislocation [Unknown]
  - Fall [Unknown]
  - Limb injury [Unknown]
  - Contusion [Unknown]
  - Blood pressure systolic increased [Unknown]
  - Respiratory rate increased [Unknown]
  - Blood pressure diastolic decreased [Unknown]
  - Pain in extremity [Unknown]
  - Gait disturbance [Unknown]
  - Muscle strain [Unknown]
  - Pharyngeal swelling [Unknown]
  - Pain [Recovered/Resolved]
  - Joint swelling [Recovered/Resolved]
  - Blood pressure increased [Unknown]
  - Dizziness [Unknown]
  - Heart rate decreased [Unknown]
  - Fatigue [Unknown]
  - Heart rate increased [Unknown]
  - Asthenia [Unknown]

NARRATIVE: CASE EVENT DATE: 20140508
